FAERS Safety Report 6692183-8 (Version None)
Quarter: 2010Q2

REPORT INFORMATION
  Report Type: 
  Country: None (occurrence: None)
  Receive Date: 20100422
  Receipt Date: 20090625
  Transmission Date: 20101027
  Serious: No
  Sender: FDA-Public Use
  Company Number: US-ASTRAZENECA-2009UW17439

PATIENT
  Sex: Female

DRUGS (5)
  1. TOPROL-XL [Suspect]
     Route: 048
     Dates: start: 20050101
  2. TOPROL-XL [Suspect]
     Dosage: 50 MG IN AM AND 25 MG IN PM
     Route: 048
     Dates: start: 20070101
  3. CRESTOR [Suspect]
     Route: 048
     Dates: start: 20050101
  4. PROTONIX [Concomitant]
  5. DILTIAZEM HCL [Concomitant]

REACTIONS (7)
  - BLOOD TRIGLYCERIDES INCREASED [None]
  - BRONCHITIS [None]
  - DYSPNOEA [None]
  - HEADACHE [None]
  - IRRITABLE BOWEL SYNDROME [None]
  - NAUSEA [None]
  - PALPITATIONS [None]
